FAERS Safety Report 6360253-X (Version None)
Quarter: 2009Q3

REPORT INFORMATION
  Report Type: 
  Country: None (occurrence: None)
  Receive Date: 20090917
  Receipt Date: 20090910
  Transmission Date: 20100115
  Serious: Yes (Other)
  Sender: FDA-Public Use
  Company Number: AT-GENENTECH-268608

PATIENT

DRUGS (13)
  1. AVASTIN [Suspect]
     Indication: MACULAR DEGENERATION
     Dosage: 1 MG, UNK
  2. AVASTIN [Suspect]
     Indication: RETINAL HAEMORRHAGE
  3. LUCENTIS [Suspect]
     Indication: MACULAR DEGENERATION
     Dosage: 0.5 MG, UNK
  4. LUCENTIS [Suspect]
     Indication: RETINAL HAEMORRHAGE
  5. ACTIVASE [Suspect]
     Indication: MACULAR DEGENERATION
     Dosage: 50 A?G, UNK
  6. ACTIVASE [Suspect]
     Indication: RETINAL HAEMORRHAGE
  7. SULFUR HEXAFLUORIDE GAS [Suspect]
     Indication: MACULAR DEGENERATION
     Dosage: 0.5 ML, UNK
  8. ACETAZOLAMIDE [Concomitant]
     Indication: DRUG USE FOR UNKNOWN INDICATION
     Route: 042
  9. DORZOLAMIDE [Concomitant]
     Indication: DRUG USE FOR UNKNOWN INDICATION
  10. TIMOLOL MALEATE [Concomitant]
     Indication: DRUG USE FOR UNKNOWN INDICATION
  11. LIDOCAINE [Concomitant]
     Indication: DRUG USE FOR UNKNOWN INDICATION
  12. OXYBUPROCAINE [Concomitant]
     Indication: DRUG USE FOR UNKNOWN INDICATION
     Dosage: UNK GTT, UNK
  13. POVIDONE IODINE [Concomitant]
     Indication: DRUG USE FOR UNKNOWN INDICATION

REACTIONS (2)
  - VISUAL ACUITY REDUCED [None]
  - VITREOUS HAEMORRHAGE [None]
